FAERS Safety Report 5811996-5 (Version None)
Quarter: 2008Q3

REPORT INFORMATION
  Report Type: 
  Country: None (occurrence: None)
  Receive Date: 20080714
  Receipt Date: 20080701
  Transmission Date: 20090109
  Serious: Yes (Life-Threatening)
  Sender: FDA-Public Use
  Company Number: 19707

PATIENT
  Sex: Female

DRUGS (1)
  1. CARBOPLATIN [Suspect]

REACTIONS (2)
  - ABDOMINAL PAIN UPPER [None]
  - DYSPNOEA [None]
